FAERS Safety Report 5926002-1 (Version None)
Quarter: 2008Q4

REPORT INFORMATION
  Report Type: 
  Country: None (occurrence: None)
  Receive Date: 20081021
  Receipt Date: 20081011
  Transmission Date: 20090506
  Serious: Yes (Other)
  Sender: FDA-Public Use
  Company Number: DE-PFIZER INC-2008087645

PATIENT
  Age: 42 Year
  Sex: Female

DRUGS (1)
  1. HYDROXYZINE HYDROCHLORIDE [Suspect]
     Route: 048
     Dates: start: 20081011, end: 20081011

REACTIONS (2)
  - FATIGUE [None]
  - SUICIDE ATTEMPT [None]
